FAERS Safety Report 12431815 (Version 7)
Quarter: 2016Q3

REPORT INFORMATION
  Report Type: Report from Study
  Country: JP (occurrence: JP)
  Receive Date: 20160603
  Receipt Date: 20160830
  Transmission Date: 20161109
  Serious: Yes (Hospitalization)
  Sender: FDA-Public Use
  Company Number: JP-ROCHE-1766838

PATIENT
  Age: 68 Year
  Sex: Female
  Weight: 41.7 kg

DRUGS (12)
  1. BEVACIZUMAB [Suspect]
     Active Substance: BEVACIZUMAB
     Indication: RENAL CELL CARCINOMA
     Dosage: MOST RECENT DOSE: 19/MAY/2016 AT 625.5 MG
     Route: 042
     Dates: start: 20160427
  2. URAPIDIL [Concomitant]
     Active Substance: URAPIDIL
     Indication: DYSURIA
     Route: 048
     Dates: start: 20160202
  3. DENOTAS [Concomitant]
     Active Substance: CALCIUM CARBONATE\CHOLECALCIFEROL\MAGNESIUM CARBONATE
     Dosage: CHEWABLE COMBINATION TABLETS
     Route: 048
     Dates: start: 20160328
  4. ATEZOLIZUMAB [Suspect]
     Active Substance: ATEZOLIZUMAB
     Indication: RENAL CELL CARCINOMA
     Dosage: MOST RECENT DOSE: 19/MAY/2016
     Route: 042
     Dates: start: 20160427
  5. DISTIGMINE BROMIDE [Concomitant]
     Active Substance: DISTIGMINE BROMIDE
     Indication: DYSURIA
     Route: 048
     Dates: start: 20160202
  6. L-CARBOCISTEINE [Concomitant]
     Active Substance: CARBOCYSTEINE
     Indication: NASOPHARYNGITIS
     Route: 048
     Dates: start: 20160524, end: 20160526
  7. PA (CAFFEINE/PARACETAMOL/PROMETHAZINE METHYLENE DISALICYLATE/SALICYLAM [Concomitant]
     Indication: NASOPHARYNGITIS
     Route: 048
     Dates: start: 20160524, end: 20160526
  8. ZOLEDRONIC ACID [Concomitant]
     Active Substance: ZOLEDRONIC ACID
     Indication: METASTASES TO BONE
     Route: 042
     Dates: start: 20160426
  9. LOPERAMIDE HYDROCHLORIDE. [Concomitant]
     Active Substance: LOPERAMIDE HYDROCHLORIDE
     Indication: DIARRHOEA
     Route: 048
     Dates: start: 20160603, end: 20160611
  10. BIFIDOBACTERIUM [Concomitant]
     Active Substance: BIFIDOBACTERIUM LONGUM
     Indication: DIARRHOEA
     Route: 048
     Dates: start: 20160601
  11. DEXTROMETHORPHAN HYDROBROMIDE. [Concomitant]
     Active Substance: DEXTROMETHORPHAN HYDROBROMIDE
     Indication: NASOPHARYNGITIS
     Route: 048
     Dates: start: 20160524, end: 20160526
  12. KETOPROFEN. [Concomitant]
     Active Substance: KETOPROFEN
     Indication: CONTUSION
     Route: 062
     Dates: start: 20160530, end: 20160605

REACTIONS (1)
  - Pyelonephritis [Recovered/Resolved]

NARRATIVE: CASE EVENT DATE: 20160527
